FAERS Safety Report 8249203-9 (Version None)
Quarter: 2012Q1

REPORT INFORMATION
  Report Type: 
  Country: None (occurrence: None)
  Receive Date: 20120328
  Receipt Date: 20120312
  Transmission Date: 20120608
  Serious: Yes (Hospitalization)
  Sender: FDA-Public Use
  Company Number: UTC-016495

PATIENT
  Age: 54 Year
  Sex: Male
  Weight: 91.55 kg

DRUGS (3)
  1. REVATIO (SILDENAFIL CITRATE0 [Concomitant]
  2. LETAIRIS (AMBERISENTAN) [Concomitant]
  3. REMODULIN [Suspect]
     Indication: PULMONARY ARTERIAL HYPERTENSION
     Dosage: 43.2 UG/KG (0.03 UG/KG, 1 IN 1 MIN), INTRAVENOUS
     Route: 042
     Dates: start: 20120209

REACTIONS (1)
  - PNEUMONIA [None]
